FAERS Safety Report 19997305 (Version 5)
Quarter: 2022Q1

REPORT INFORMATION
  Report Type: Report from Study
  Country: US (occurrence: US)
  Receive Date: 20211026
  Receipt Date: 20220309
  Transmission Date: 20220424
  Serious: No
  Sender: FDA-Public Use
  Company Number: NVSC2021US242792

PATIENT
  Sex: Male

DRUGS (1)
  1. ENTRESTO [Suspect]
     Active Substance: SACUBITRIL\VALSARTAN
     Indication: Product used for unknown indication
     Dosage: 1 DF, BID (24/26 MG)
     Route: 065
     Dates: start: 202108

REACTIONS (7)
  - Weight fluctuation [Unknown]
  - Weight increased [Unknown]
  - Blood cholesterol decreased [Unknown]
  - Haemorrhoids [Recovering/Resolving]
  - Haemorrhoidal haemorrhage [Recovering/Resolving]
  - Cough [Unknown]
  - Hypotension [Recovering/Resolving]
